FAERS Safety Report 19984600 (Version 1)
Quarter: 2021Q4

REPORT INFORMATION
  Report Type: Report from Study
  Country: BR (occurrence: BR)
  Receive Date: 20211021
  Receipt Date: 20211021
  Transmission Date: 20220303
  Serious: Yes (Hospitalization)
  Sender: FDA-Public Use
  Company Number: BR-JNJFOC-20211029439

PATIENT
  Sex: Female

DRUGS (1)
  1. INFLIXIMAB [Suspect]
     Active Substance: INFLIXIMAB
     Indication: Crohn^s disease
     Dosage: 4 VIALS, FREQUENCY DOES NOT REMEMBER
     Route: 042
     Dates: start: 20111001

REACTIONS (4)
  - Intestinal resection [Recovered/Resolved]
  - Inflammation [Unknown]
  - Diarrhoea [Unknown]
  - Stenosis [Unknown]

NARRATIVE: CASE EVENT DATE: 20130101
